FAERS Safety Report 8921775 (Version 4)
Quarter: 2013Q2

REPORT INFORMATION
  Report Type: Spontaneous
  Country: FR (occurrence: FR)
  Receive Date: 20121121
  Receipt Date: 20130624
  Transmission Date: 20140414
  Serious: Yes (Life-Threatening, Hospitalization)
  Sender: FDA-Public Use
  Company Number: FR-ROCHE-1158037

PATIENT
  Age: 64 Year
  Sex: Male
  Weight: 83 kg

DRUGS (3)
  1. AVASTIN [Suspect]
     Indication: NON-SMALL CELL LUNG CANCER
     Route: 042
     Dates: start: 20111229, end: 20120926
  2. AVASTIN [Suspect]
     Route: 042
     Dates: start: 20111229, end: 20120926
  3. MOTILIUM (FRANCE) [Concomitant]
     Indication: NAUSEA
     Route: 048
     Dates: start: 20111229

REACTIONS (1)
  - Aortic dissection [Recovered/Resolved with Sequelae]
